FAERS Safety Report 4920022-1 (Version None)
Quarter: 2006Q1

REPORT INFORMATION
  Report Type: 
  Country: None (occurrence: None)
  Receive Date: 20060223
  Receipt Date: 20060112
  Transmission Date: 20060701
  Serious: Yes (Disabling)
  Sender: FDA-Public Use
  Company Number: 2006AP00179

PATIENT
  Age: 18244 Day
  Sex: Male
  Weight: 100 kg

DRUGS (29)
  1. DIPRIVAN [Suspect]
     Indication: MAINTENANCE OF ANAESTHESIA
     Route: 042
     Dates: start: 20060103, end: 20060104
  2. DIPRIVAN [Suspect]
     Indication: SEDATIVE THERAPY
     Route: 042
     Dates: start: 20060103, end: 20060104
  3. DIPRIVAN [Suspect]
     Route: 042
     Dates: start: 20060104, end: 20060104
  4. DIPRIVAN [Suspect]
     Route: 042
     Dates: start: 20060104, end: 20060104
  5. FENTANEST [Concomitant]
     Indication: ANAESTHESIA
     Route: 042
     Dates: start: 20060103, end: 20060103
  6. FENTANEST [Concomitant]
     Indication: PAIN
     Route: 042
     Dates: start: 20060103, end: 20060103
  7. DORMICUM [Concomitant]
     Indication: ANAESTHESIA
     Route: 042
     Dates: start: 20060103, end: 20060103
  8. DORMICUM [Concomitant]
     Route: 041
     Dates: start: 20060104, end: 20060108
  9. INOVAN [Concomitant]
     Route: 042
     Dates: start: 20060103, end: 20060103
  10. MUSCULAX [Concomitant]
     Indication: HYPOTONIA
     Route: 042
     Dates: start: 20060103, end: 20060103
  11. HEPARIN [Concomitant]
     Dates: start: 20060103, end: 20060103
  12. EFFORTIL [Concomitant]
     Route: 042
     Dates: start: 20060103, end: 20060103
  13. CEZ [Concomitant]
     Route: 042
     Dates: start: 20060103, end: 20060103
  14. TRASYLOL [Concomitant]
     Route: 042
     Dates: start: 20060103, end: 20060103
  15. ELASPOL [Concomitant]
     Route: 042
     Dates: start: 20060103, end: 20060103
  16. PROTAMINE SULFATE [Concomitant]
     Route: 042
     Dates: start: 20060103, end: 20060103
  17. CALCILOL [Concomitant]
     Route: 042
     Dates: start: 20060103, end: 20060103
  18. XYLOCAINE [Concomitant]
     Route: 042
     Dates: start: 20060103, end: 20060103
  19. NITROGLYCERIN [Concomitant]
     Route: 042
     Dates: start: 20060103, end: 20060103
  20. NEOSYNESIN [Concomitant]
     Route: 042
     Dates: start: 20060103, end: 20060103
  21. HUMULIN [Concomitant]
     Route: 058
     Dates: start: 20060103, end: 20060103
  22. HANP [Concomitant]
     Route: 041
  23. GASTER [Concomitant]
  24. DIGILANOGEN C [Concomitant]
  25. PPF [Concomitant]
  26. MORPHINE [Concomitant]
  27. FUTHAN [Concomitant]
     Indication: DIALYSIS
     Route: 041
  28. LASIX [Concomitant]
  29. POTASSIUM CHLORIDE [Concomitant]

REACTIONS (3)
  - AORTIC DISSECTION [None]
  - DIALYSIS [None]
  - RHABDOMYOLYSIS [None]
